FAERS Safety Report 16204780 (Version 1)
Quarter: 2020Q3

REPORT INFORMATION
  Report Type: Spontaneous
  Country: US (occurrence: US)
  Receive Date: 20190416
  Receipt Date: 20190416
  Transmission Date: 20201104
  Serious: Yes (Hospitalization, Other)
  Sender: FDA-Public Use
  Company Number: US-AMNEAL PHARMACEUTICALS-2018AMN00640

PATIENT
  Age: 50 Year
  Sex: Male
  Weight: 89.9 kg

DRUGS (3)
  1. NUMIDARGISTAT. [Suspect]
     Active Substance: NUMIDARGISTAT
     Indication: OESOPHAGEAL CARCINOMA
     Dosage: 100 MG, 2X/DAY
     Route: 048
     Dates: start: 20180522, end: 20180814
  2. NUMIDARGISTAT. [Suspect]
     Active Substance: NUMIDARGISTAT
     Dosage: 100 MG, 2X/DAY
     Route: 048
     Dates: start: 20180828, end: 20180831
  3. IBUPROFEN. [Suspect]
     Active Substance: IBUPROFEN
     Indication: PRODUCT USED FOR UNKNOWN INDICATION
     Dosage: UNK
     Route: 065
     Dates: start: 20180717, end: 20180815

REACTIONS (1)
  - Acute kidney injury [Recovered/Resolved]

NARRATIVE: CASE EVENT DATE: 20180814
